FAERS Safety Report 9224100 (Version 1)
Quarter: 2013Q2

REPORT INFORMATION
  Report Type: Spontaneous
  Country: US (occurrence: None)
  Receive Date: 20130409
  Receipt Date: 20130409
  Transmission Date: 20140414
  Serious: Yes (Life-Threatening, Hospitalization)
  Sender: FDA-Public Use
  Company Number: None

PATIENT
  Sex: Female

DRUGS (1)
  1. AZITHROMYCIN [Suspect]
     Dates: start: 20130122, end: 20130127

REACTIONS (5)
  - Nausea [None]
  - Diarrhoea [None]
  - Abdominal pain [None]
  - White blood cell count increased [None]
  - Liver disorder [None]
